FAERS Safety Report 7381392-0 (Version None)
Quarter: 2011Q1

REPORT INFORMATION
  Report Type: 
  Country: None (occurrence: None)
  Receive Date: 20110321
  Receipt Date: 20110307
  Transmission Date: 20110831
  Serious: Yes (Other)
  Sender: FDA-Public Use
  Company Number: 2011P1004883

PATIENT
  Age: 3 Year
  Sex: Female

DRUGS (2)
  1. ERYTHROMYCIN [Suspect]
  2. FENTANYL [Suspect]

REACTIONS (1)
  - DRUG HYPERSENSITIVITY [None]
